FAERS Safety Report 12858346 (Version 1)
Quarter: 2016Q4

REPORT INFORMATION
  Report Type: Spontaneous
  Country: NL (occurrence: NL)
  Receive Date: 20161018
  Receipt Date: 20161018
  Transmission Date: 20170207
  Serious: Yes (Hospitalization)
  Sender: FDA-Public Use
  Company Number: PHHY2016NL140942

PATIENT
  Sex: Male
  Weight: 2.5 kg

DRUGS (2)
  1. IMMUNOGLOBULIN I.V [Suspect]
     Active Substance: HUMAN IMMUNOGLOBULIN G
     Indication: FOETAL EXPOSURE DURING PREGNANCY
     Dosage: UNK
     Route: 064
  2. CARBAMAZEPINE. [Suspect]
     Active Substance: CARBAMAZEPINE
     Indication: FOETAL EXPOSURE DURING PREGNANCY
     Dosage: UNK
     Route: 064

REACTIONS (7)
  - Encephalitis autoimmune [Recovered/Resolved]
  - Foetal exposure during pregnancy [Unknown]
  - Poor sucking reflex [Recovered/Resolved]
  - Motor dysfunction [Unknown]
  - Respiratory failure [Unknown]
  - Hyporeflexia [Recovered/Resolved]
  - Lethargy [Unknown]
